FAERS Safety Report 6134037-1 (Version None)
Quarter: 2009Q1

REPORT INFORMATION
  Report Type: 
  Country: None (occurrence: None)
  Receive Date: 20090217
  Receipt Date: 20080221
  Transmission Date: 20090719
  Serious: No
  Sender: FDA-Public Use
  Company Number: 200610027BBE

PATIENT
  Age: 44 Year
  Sex: Male
  Weight: 54.4316 kg

DRUGS (1)
  1. PROLASTIN [Suspect]
     Indication: ALPHA-1 ANTI-TRYPSIN DEFICIENCY
     Dosage: 3964 MG; 1X; IV
     Route: 042
     Dates: start: 20060111, end: 20060119

REACTIONS (3)
  - MALAISE [None]
  - PAIN [None]
  - PYREXIA [None]
